FAERS Safety Report 19208396 (Version 2)
Quarter: 2021Q3

REPORT INFORMATION
  Report Type: Report from Study
  Country: US (occurrence: US)
  Receive Date: 20210503
  Receipt Date: 20210824
  Transmission Date: 20211014
  Serious: Yes (Hospitalization)
  Sender: FDA-Public Use
  Company Number: US-ROCHE-2816921

PATIENT
  Age: 76 Year
  Sex: Female

DRUGS (28)
  1. ACP?196 (BTK INHIBITOR) [Suspect]
     Active Substance: ACALABRUTINIB
     Route: 048
     Dates: start: 20160602, end: 20160626
  2. LEVAQUIN [Concomitant]
     Active Substance: LEVOFLOXACIN
  3. ACP?196 (BTK INHIBITOR) [Suspect]
     Active Substance: ACALABRUTINIB
     Route: 048
     Dates: start: 20160521, end: 20160521
  4. ACP?196 (BTK INHIBITOR) [Suspect]
     Active Substance: ACALABRUTINIB
     Route: 048
     Dates: start: 20160627, end: 20160627
  5. ACP?196 (BTK INHIBITOR) [Suspect]
     Active Substance: ACALABRUTINIB
     Route: 048
     Dates: start: 20160627, end: 20160727
  6. NITRIC OXIDE. [Concomitant]
     Active Substance: NITRIC OXIDE
  7. FAMOTIDINE. [Concomitant]
     Active Substance: FAMOTIDINE
  8. AMOXICILLIN. [Concomitant]
     Active Substance: AMOXICILLIN
  9. ACP?196 (BTK INHIBITOR) [Suspect]
     Active Substance: ACALABRUTINIB
     Route: 048
     Dates: start: 20160522, end: 20160601
  10. ACP?196 (BTK INHIBITOR) [Suspect]
     Active Substance: ACALABRUTINIB
     Route: 048
     Dates: start: 20201113, end: 20201123
  11. ACP?196 (BTK INHIBITOR) [Suspect]
     Active Substance: ACALABRUTINIB
     Route: 048
     Dates: start: 20201102, end: 20201102
  12. OBINUTUZUMAB. [Suspect]
     Active Substance: OBINUTUZUMAB
     Indication: CHRONIC LYMPHOCYTIC LEUKAEMIA
     Route: 042
     Dates: start: 20160505, end: 20160505
  13. ACYCLOVIR. [Concomitant]
     Active Substance: ACYCLOVIR
  14. ACP?196 (BTK INHIBITOR) [Suspect]
     Active Substance: ACALABRUTINIB
     Indication: CHRONIC LYMPHOCYTIC LEUKAEMIA
     Route: 048
     Dates: start: 20160407, end: 20160504
  15. ACP?196 (BTK INHIBITOR) [Suspect]
     Active Substance: ACALABRUTINIB
     Route: 048
     Dates: start: 20160825, end: 20160921
  16. ACP?196 (BTK INHIBITOR) [Suspect]
     Active Substance: ACALABRUTINIB
     Route: 048
     Dates: start: 20201203, end: 20210225
  17. ONDANSETRON [Concomitant]
     Active Substance: ONDANSETRON
  18. ACP?196 (BTK INHIBITOR) [Suspect]
     Active Substance: ACALABRUTINIB
     Route: 048
     Dates: start: 20160822, end: 20161117
  19. VITAMIN C [Concomitant]
     Active Substance: ASCORBIC ACID
  20. OBINUTUZUMAB. [Suspect]
     Active Substance: OBINUTUZUMAB
     Route: 042
     Dates: start: 20160922, end: 20160922
  21. ACP?196 (BTK INHIBITOR) [Suspect]
     Active Substance: ACALABRUTINIB
     Route: 048
     Dates: start: 20160505, end: 20160520
  22. ACETAMINOPHEN. [Concomitant]
     Active Substance: ACETAMINOPHEN
  23. VALACYCLOVIR [Concomitant]
     Active Substance: VALACYCLOVIR HYDROCHLORIDE
  24. TRAMADOL. [Concomitant]
     Active Substance: TRAMADOL
  25. DEXAMETHASONE. [Concomitant]
     Active Substance: DEXAMETHASONE
  26. ACP?196 (BTK INHIBITOR) [Suspect]
     Active Substance: ACALABRUTINIB
     Route: 048
     Dates: start: 20160728, end: 20160824
  27. CEPHALEXIN. [Concomitant]
     Active Substance: CEPHALEXIN
  28. NYSTATIN. [Concomitant]
     Active Substance: NYSTATIN

REACTIONS (1)
  - Syncope [Recovered/Resolved]

NARRATIVE: CASE EVENT DATE: 20210331
